FAERS Safety Report 7432415-1 (Version None)
Quarter: 2011Q2

REPORT INFORMATION
  Report Type: 
  Country: None (occurrence: None)
  Receive Date: 20110422
  Receipt Date: 20110418
  Transmission Date: 20111010
  Serious: Yes (Hospitalization)
  Sender: FDA-Public Use
  Company Number: SE-PFIZER INC-2011084175

PATIENT
  Age: 39 Year
  Sex: Female

DRUGS (1)
  1. DALACIN [Suspect]
     Indication: PROPHYLAXIS
     Dosage: UNK
     Route: 048
     Dates: start: 20101118, end: 20101123

REACTIONS (2)
  - PRURITUS [None]
  - ANGIOEDEMA [None]
